FAERS Safety Report 18729982 (Version 1)
Quarter: 2021Q1

REPORT INFORMATION
  Report Type: Spontaneous
  Country: SE (occurrence: SE)
  Receive Date: 20210112
  Receipt Date: 20210112
  Transmission Date: 20210419
  Serious: Yes (Hospitalization)
  Sender: FDA-Public Use
  Company Number: SE-TEVA-2021-SE-1867169

PATIENT
  Age: 78 Year
  Sex: Male

DRUGS (13)
  1. ATORVASTATIN [Concomitant]
     Active Substance: ATORVASTATIN
     Dosage: 80MG
  2. FUROSEMIDE. [Concomitant]
     Active Substance: FUROSEMIDE
     Dosage: IF NECESSARY, 40MG
  3. LERCANIDIPINE [Concomitant]
     Active Substance: LERCANIDIPINE
     Dosage: 20MG
  4. GABAPENTIN. [Suspect]
     Active Substance: GABAPENTIN
     Indication: PAIN
     Dosage: 900MG
     Route: 048
     Dates: start: 20200722, end: 20200909
  5. LAXIDO [Concomitant]
     Active Substance: POLYETHYLENE GLYCOL 3350\POTASSIUM CHLORIDE\SODIUM BICARBONATE\SODIUM CHLORIDE
     Dosage: 1 SACHET X 3 IF NEEDED
  6. SODIUM CHLORIDE. [Concomitant]
     Active Substance: SODIUM CHLORIDE
     Dosage: 1500MG
  7. SELOKENZOC 50 MG DEPOTTABLETT [Concomitant]
     Dosage: 50MG
  8. CILAXORAL [Concomitant]
     Active Substance: SODIUM PICOSULFATE
     Dosage: 20 DROPS IF NEEDED, 20GTT
  9. ACETYLSALICYLIC ACID [Concomitant]
     Active Substance: ASPIRIN
     Dosage: 75MG
  10. NITROLINGUAL [Concomitant]
     Active Substance: NITROGLYCERIN
     Dosage: 1?2 DOSES IF NEEDED
  11. XALATAN 50 MIKROGRAM/ML OGONDROPPAR, LOSNING [Concomitant]
     Dosage: 1 DROP AT NIGHT, 1GTT
  12. ALVEDON FORTE [Concomitant]
     Active Substance: ACETAMINOPHEN
     Dosage: 1 TABLET IF NEEDED
  13. ESOMEPRAZOLE. [Concomitant]
     Active Substance: ESOMEPRAZOLE MAGNESIUM
     Dosage: 40MG

REACTIONS (1)
  - Inappropriate antidiuretic hormone secretion [Recovered/Resolved]

NARRATIVE: CASE EVENT DATE: 20200910
